FAERS Safety Report 8908080 (Version 1)
Quarter: 2012Q4

REPORT INFORMATION
  Report Type: 
  Country: BD (occurrence: BD)
  Receive Date: 20121114
  Receipt Date: 20121114
  Transmission Date: 20130627
  Serious: Yes (Death)
  Sender: FDA-Public Use
  Company Number: PHHY2012BD104273

PATIENT
  Age: 86 Year
  Sex: Male

DRUGS (1)
  1. EXELON PATCH [Suspect]
     Indication: DEMENTIA
     Dosage: 10 cm (9.5 mg/24 hours)
     Route: 062
     Dates: start: 200906, end: 201108

REACTIONS (2)
  - Dyspnoea [Fatal]
  - Heart rate increased [Fatal]
